FAERS Safety Report 24085342 (Version 1)
Quarter: 2024Q3

REPORT INFORMATION
  Report Type: Spontaneous
  Country: DZ (occurrence: DZ)
  Receive Date: 20240712
  Receipt Date: 20240712
  Transmission Date: 20241016
  Serious: Yes (Death)
  Sender: PFIZER
  Company Number: DZ-PFIZER INC-202400212238

PATIENT
  Sex: Male

DRUGS (1)
  1. AXITINIB [Suspect]
     Active Substance: AXITINIB
     Indication: Renal cancer metastatic
     Dosage: UNK
     Dates: end: 20240704

REACTIONS (1)
  - Death [Fatal]

NARRATIVE: CASE EVENT DATE: 20240704
